FAERS Safety Report 7358625-X (Version None)
Quarter: 2011Q1

REPORT INFORMATION
  Report Type: 
  Country: None (occurrence: None)
  Receive Date: 20110317
  Receipt Date: 20110303
  Transmission Date: 20110831
  Serious: Yes (Other)
  Sender: FDA-Public Use
  Company Number: PHHY2011GB16850

PATIENT
  Age: 65 Year
  Sex: Male

DRUGS (7)
  1. CYCLOPHOSPHAMIDE [Suspect]
     Indication: RENAL VASCULITIS
     Dosage: 200 MG
  2. PREDNISOLONE [Suspect]
     Indication: RENAL VASCULITIS
     Dosage: 80 MG
  3. PREDNISOLONE [Suspect]
     Dosage: 25 MG
  4. COTRIM [Suspect]
     Indication: PROPHYLAXIS
  5. AZATHIOPRINE [Suspect]
     Dosage: 150 MG
  6. RITUXIMAB [Suspect]
     Dosage: 375 MG/M2 WEEKLY FOR FOUR WEEKS
  7. MYCOPHENOLATE MOFETIL [Suspect]
     Dosage: 1 G BD

REACTIONS (12)
  - MYELITIS TRANSVERSE [None]
  - SENSORY LOSS [None]
  - PLEURAL FIBROSIS [None]
  - LEUKOPENIA [None]
  - URINARY RETENTION [None]
  - CUSHINGOID [None]
  - MUSCULOSKELETAL PAIN [None]
  - VASCULITIS [None]
  - CONSTIPATION [None]
  - LOWER RESPIRATORY TRACT INFECTION [None]
  - DRUG INEFFECTIVE [None]
  - MUSCULAR WEAKNESS [None]
